FAERS Safety Report 17211439 (Version 4)
Quarter: 2020Q3

REPORT INFORMATION
  Report Type: Report from Study
  Country: NL (occurrence: NL)
  Receive Date: 20191229
  Receipt Date: 20200601
  Transmission Date: 20201105
  Serious: Yes (Hospitalization)
  Sender: FDA-Public Use
  Company Number: NL-ALEXION PHARMACEUTICALS INC.-A201916890

PATIENT
  Age: 41 Year
  Sex: Female
  Weight: 90 kg

DRUGS (8)
  1. FOLIUMZUUR [Concomitant]
     Active Substance: FOLIC ACID
     Indication: PROPHYLAXIS
     Dosage: 5 MG, QD
     Route: 048
     Dates: start: 2014
  2. PARACETAMOL [Concomitant]
     Active Substance: ACETAMINOPHEN
     Indication: ABDOMINAL PAIN UPPER
     Dosage: 1000 MG, QID
     Route: 048
     Dates: start: 20191027
  3. PARACETAMOL [Concomitant]
     Active Substance: ACETAMINOPHEN
     Indication: CHOLELITHIASIS
  4. RAVULIZUMAB. [Suspect]
     Active Substance: RAVULIZUMAB
     Dosage: 3300 MG, UNK
     Route: 042
     Dates: start: 20191009
  5. RAVULIZUMAB. [Suspect]
     Active Substance: RAVULIZUMAB
     Indication: PAROXYSMAL NOCTURNAL HAEMOGLOBINURIA
     Dosage: 2700 MG, UNK
     Route: 042
     Dates: start: 20190925
  6. RAVULIZUMAB. [Suspect]
     Active Substance: RAVULIZUMAB
     Dosage: UNK
     Route: 058
     Dates: start: 20191204
  7. PARACETAMOL [Concomitant]
     Active Substance: ACETAMINOPHEN
     Indication: HEADACHE
     Dosage: 500 MG, PRN
     Route: 048
     Dates: start: 2014
  8. RAVULIZUMAB. [Suspect]
     Active Substance: RAVULIZUMAB
     Dosage: UNK
     Route: 058
     Dates: start: 20200513

REACTIONS (1)
  - Cholecystitis [Recovered/Resolved]

NARRATIVE: CASE EVENT DATE: 20191027
